FAERS Safety Report 6579294-2 (Version None)
Quarter: 2010Q1

REPORT INFORMATION
  Report Type: 
  Country: None (occurrence: None)
  Receive Date: 20100212
  Receipt Date: 20100209
  Transmission Date: 20100710
  Serious: Yes (Death)
  Sender: FDA-Public Use
  Company Number: DE-SANOFI-AVENTIS-2010SA004078

PATIENT
  Age: 62 Year
  Sex: Female
  Weight: 100 kg

DRUGS (9)
  1. MULTAQ [Suspect]
     Indication: ATRIAL FIBRILLATION
     Route: 048
     Dates: start: 20100118
  2. VERAPAMIL [Concomitant]
     Dosage: DOSAGE: 2X1/2 /D
     Route: 048
     Dates: start: 20100118
  3. VERAPAMIL [Concomitant]
     Route: 042
     Dates: start: 20100115, end: 20100115
  4. DIGIMERCK MINOR [Concomitant]
     Route: 042
     Dates: start: 20100115, end: 20100115
  5. DIGIMERCK MINOR [Concomitant]
     Route: 048
     Dates: start: 20100118
  6. AMIODARONE HCL [Concomitant]
     Route: 042
     Dates: start: 20100115, end: 20100115
  7. CLEXANE [Concomitant]
     Route: 058
     Dates: start: 20100118
  8. MARCUMAR [Concomitant]
     Route: 048
     Dates: start: 20100118
  9. TORSEMIDE [Concomitant]
     Route: 065
     Dates: start: 20100118

REACTIONS (1)
  - SUDDEN CARDIAC DEATH [None]
